FAERS Safety Report 5165778-0 (Version None)
Quarter: 2006Q4

REPORT INFORMATION
  Report Type: 
  Country: None (occurrence: None)
  Receive Date: 20061128
  Receipt Date: 20061110
  Transmission Date: 20070319
  Serious: No
  Sender: FDA-Public Use
  Company Number: E2020-00709-SPO-US

PATIENT
  Age: 89 Year

DRUGS (3)
  1. ARICEPT [Suspect]
     Dosage: ORAL
     Route: 048
  2. VERAPAMIL [Concomitant]
  3. MEMANTINE HCL [Concomitant]

REACTIONS (1)
  - SUICIDE ATTEMPT [None]
